FAERS Safety Report 6090248-5 (Version None)
Quarter: 2009Q1

REPORT INFORMATION
  Report Type: 
  Country: None (occurrence: None)
  Receive Date: 20090220
  Receipt Date: 20090213
  Transmission Date: 20090719
  Serious: Yes (Hospitalization)
  Sender: FDA-Public Use
  Company Number: 2009SP003324

PATIENT
  Sex: Male

DRUGS (1)
  1. PEGATRON (PEGINTERFERON ALFA-2B W/RIBAVIRIN) (PEGYLATED INTERFERON ALF [Suspect]
     Indication: DRUG USE FOR UNKNOWN INDICATION
     Dates: start: 20081201

REACTIONS (3)
  - LIP SWELLING [None]
  - PAIN IN JAW [None]
  - SWELLING FACE [None]
